FAERS Safety Report 6714288-5 (Version None)
Quarter: 2010Q2

REPORT INFORMATION
  Report Type: 
  Country: None (occurrence: None)
  Receive Date: 20100504
  Receipt Date: 20100422
  Transmission Date: 20101027
  Serious: Yes (Life-Threatening, Disabling)
  Sender: FDA-Public Use
  Company Number: OSCN-NO-0705S-0215

PATIENT
  Age: 43 Year
  Sex: Male

DRUGS (4)
  1. OMNISCAN [Suspect]
     Indication: ANASTOMOTIC STENOSIS
     Dosage: 15 ML, SINGLE DOSE, I.V.
     Route: 042
     Dates: start: 20000718, end: 20000718
  2. OMNISCAN [Suspect]
     Indication: RENAL TRANSPLANT
     Dosage: 15 ML, SINGLE DOSE, I.V.
     Route: 042
     Dates: start: 20000718, end: 20000718
  3. MAGNEVIST [Concomitant]
  4. MULTIPLE UNSPECIFIED DRUGS [Concomitant]

REACTIONS (10)
  - BONE DISORDER [None]
  - CALCINOSIS [None]
  - FEELING HOT [None]
  - GAIT DISTURBANCE [None]
  - HUMERUS FRACTURE [None]
  - INTRACRANIAL ANEURYSM [None]
  - METAPLASIA [None]
  - NEPHROGENIC SYSTEMIC FIBROSIS [None]
  - PLATELET COUNT DECREASED [None]
  - TREATMENT FAILURE [None]
